FAERS Safety Report 19594926 (Version 1)
Quarter: 2021Q3

REPORT INFORMATION
  Report Type: Spontaneous
  Country: FR (occurrence: FR)
  Receive Date: 20210722
  Receipt Date: 20210722
  Transmission Date: 20211014
  Serious: Yes (Other)
  Sender: FDA-Public Use
  Company Number: FR-ORGANON-O2106FRA001671

PATIENT
  Age: 32 Year
  Sex: Female

DRUGS (2)
  1. NEXPLANON [Suspect]
     Active Substance: ETONOGESTREL
     Indication: CONTRACEPTION
     Dosage: 1 DOSAGE FORM (IMPLANT)
     Route: 059
     Dates: start: 2018, end: 20210601
  2. NEXPLANON [Suspect]
     Active Substance: ETONOGESTREL
     Dosage: ONE IMPLANT, RIGHT HAND
     Route: 058
     Dates: start: 20210601, end: 20210629

REACTIONS (12)
  - Hypersensitivity [Recovered/Resolved]
  - Implant site urticaria [Recovered/Resolved]
  - Implant site infection [Unknown]
  - Pain in extremity [Unknown]
  - Pyelonephritis acute [Recovering/Resolving]
  - Implant site erythema [Unknown]
  - Implant site pain [Unknown]
  - Abortion induced [Unknown]
  - Unintended pregnancy [Recovered/Resolved]
  - Implant site pruritus [Unknown]
  - Implant site oedema [Unknown]
  - Pregnancy with implant contraceptive [Recovered/Resolved]

NARRATIVE: CASE EVENT DATE: 20210422
